FAERS Safety Report 8458376-4 (Version None)
Quarter: 2012Q2

REPORT INFORMATION
  Report Type: 
  Country: None (occurrence: None)
  Receive Date: 20120622
  Receipt Date: 20120611
  Transmission Date: 20120825
  Serious: Yes (Life-Threatening)
  Sender: FDA-Public Use
  Company Number: DE-CELGENEUS-062-50794-12061544

PATIENT
  Age: 75 Year
  Sex: Male
  Weight: 81 kg

DRUGS (5)
  1. LENOGRASTIM [Suspect]
     Route: 065
  2. IDARUBICIN HCL [Suspect]
     Route: 065
  3. VIDAZA [Suspect]
     Route: 065
  4. CYTARABINE [Suspect]
     Route: 065
     Dates: start: 20120522, end: 20120526
  5. ETOPOSIDE [Suspect]
     Route: 065

REACTIONS (1)
  - SEPSIS [None]
